FAERS Safety Report 23870868 (Version 2)
Quarter: 2024Q2

REPORT INFORMATION
  Report Type: Spontaneous
  Country: CH (occurrence: CH)
  Receive Date: 20240518
  Receipt Date: 20240610
  Transmission Date: 20240716
  Serious: Yes (Death, Hospitalization)
  Sender: FDA-Public Use
  Company Number: CH-TEVA-VS-3197626

PATIENT
  Age: 55 Year
  Sex: Male

DRUGS (6)
  1. CISPLATIN [Suspect]
     Active Substance: CISPLATIN
     Indication: Solitary fibrous tumour
     Route: 065
     Dates: start: 2015, end: 2015
  2. MESNA [Concomitant]
     Active Substance: MESNA
     Indication: Solitary fibrous tumour
     Route: 065
     Dates: start: 2015, end: 2015
  3. PAZOPANIB [Suspect]
     Active Substance: PAZOPANIB
     Indication: Solitary fibrous tumour
     Route: 065
     Dates: start: 202210
  4. SUNITINIB [Suspect]
     Active Substance: SUNITINIB
     Indication: Solitary fibrous tumour
     Route: 065
     Dates: start: 202207, end: 202210
  5. IFOSFAMIDE [Suspect]
     Active Substance: IFOSFAMIDE
     Indication: Solitary fibrous tumour
     Route: 065
     Dates: start: 2015, end: 2015
  6. ETOPOSIDE [Suspect]
     Active Substance: ETOPOSIDE
     Indication: Solitary fibrous tumour
     Route: 065
     Dates: start: 2015, end: 2015

REACTIONS (1)
  - Drug ineffective [Fatal]

NARRATIVE: CASE EVENT DATE: 20150101
